FAERS Safety Report 17761626 (Version 1)
Quarter: 2020Q2

REPORT INFORMATION
  Report Type: Spontaneous
  Country: ES (occurrence: ES)
  Receive Date: 20200508
  Receipt Date: 20200508
  Transmission Date: 20200714
  Serious: Yes (Hospitalization)
  Sender: FDA-Public Use
  Company Number: ES-CADILA HEALTHCARE LIMITED-ES-ZYDUS-027829

PATIENT

DRUGS (6)
  1. DOXAZOSIN [Concomitant]
     Active Substance: DOXAZOSIN MESYLATE
     Indication: HYPERTENSION
     Route: 048
     Dates: start: 20170403
  2. ATORVASTATIN W/ EZETIMIBE [Concomitant]
     Dosage: 1 DOSAGE FORM,(INTERVAL :24 HOURS)
     Route: 048
     Dates: start: 20120101
  3. CLOPIDOGREL [Concomitant]
     Active Substance: CLOPIDOGREL BISULFATE
     Indication: ARTERIAL STENT INSERTION
     Route: 048
     Dates: start: 20130521
  4. RANITIDIN [Concomitant]
     Active Substance: RANITIDINE HYDROCHLORIDE
     Dosage: 150 MILLIGRAM,0-0-1,(INTERVAL :24 HOURS)
     Route: 048
     Dates: start: 20130521
  5. ENALAPRIL [Concomitant]
     Active Substance: ENALAPRIL
     Indication: HYPERTENSION
     Dosage: 10 MILLIGRAM,1-0-0,(INTERVAL :24 HOURS)
     Route: 048
     Dates: start: 20170403
  6. CARVEDILOL. [Suspect]
     Active Substance: CARVEDILOL
     Indication: ATRIAL FIBRILLATION
     Dosage: 25 MILLIGRAM,(INTERVAL :1 DAYS)
     Route: 048
     Dates: start: 20170407, end: 20170408

REACTIONS (1)
  - Hypoglycaemia [Recovered/Resolved]

NARRATIVE: CASE EVENT DATE: 20170409
